FAERS Safety Report 23897305 (Version 1)
Quarter: 2024Q2

REPORT INFORMATION
  Report Type: Report from Study
  Country: BR (occurrence: BR)
  Receive Date: 20240524
  Receipt Date: 20240524
  Transmission Date: 20240716
  Serious: Yes (Hospitalization, Other)
  Sender: FDA-Public Use
  Company Number: BR-JNJFOC-20240546475

PATIENT
  Age: 17 Year
  Sex: Female
  Weight: 40 kg

DRUGS (5)
  1. INFLIXIMAB [Suspect]
     Active Substance: INFLIXIMAB
     Indication: Crohn^s disease
     Route: 041
     Dates: start: 2023
  2. INFLIXIMAB [Suspect]
     Active Substance: INFLIXIMAB
     Route: 041
  3. INFLIXIMAB [Suspect]
     Active Substance: INFLIXIMAB
     Indication: Crohn^s disease
     Dosage: 4 AMPOULES
     Route: 041
  4. REMICADE [Suspect]
     Active Substance: INFLIXIMAB
     Indication: Crohn^s disease
     Route: 041
  5. INFLIXIMAB [Suspect]
     Active Substance: INFLIXIMAB
     Indication: Crohn^s disease
     Route: 065

REACTIONS (7)
  - Nosocomial infection [Recovered/Resolved]
  - Crohn^s disease [Unknown]
  - Hospitalisation [Unknown]
  - Drug hypersensitivity [Unknown]
  - Product dose omission issue [Unknown]
  - Product prescribing error [Unknown]
  - Off label use [Unknown]

NARRATIVE: CASE EVENT DATE: 20230401
